FAERS Safety Report 17127293 (Version 1)
Quarter: 2019Q4

REPORT INFORMATION
  Report Type: Spontaneous
  Country: US (occurrence: US)
  Receive Date: 20191209
  Receipt Date: 20191209
  Transmission Date: 20200122
  Serious: No
  Sender: FDA-Public Use
  Company Number: US-TEVA-2019-US-1149279

PATIENT
  Sex: Female

DRUGS (3)
  1. ZOLMIPTRIPTAN [Concomitant]
     Active Substance: ZOLMITRIPTAN
     Route: 065
  2. DIVALPROEX 250MG ER [Concomitant]
     Dosage: EXTENDED RELEASE
     Route: 065
  3. COPAXONE [Suspect]
     Active Substance: GLATIRAMER ACETATE
     Indication: MULTIPLE SCLEROSIS
     Dosage: COPAXONE 40 MG/ML THREE TIMES PER WEEK
     Route: 058
     Dates: start: 20170615

REACTIONS (1)
  - Migraine [Unknown]
